FAERS Safety Report 9207066 (Version 1)
Quarter: 2013Q2

REPORT INFORMATION
  Report Type: Spontaneous
  Country: US (occurrence: US)
  Receive Date: 20130403
  Receipt Date: 20130403
  Transmission Date: 20140414
  Serious: Yes (Other)
  Sender: FDA-Public Use
  Company Number: PHEH2013US007262

PATIENT
  Sex: Male
  Weight: 77.98 kg

DRUGS (9)
  1. TRILEPTAL [Suspect]
     Dosage: UNK UKN, UNK
  2. CONCERTA [Suspect]
     Dosage: UNK UKN, UNK
  3. EFFEXOR [Suspect]
     Dosage: UNK UKN, UNK
  4. LEXAPRO [Suspect]
     Dosage: UNK UKN, UNK
  5. AMBIEN [Suspect]
     Dosage: UNK UKN, UNK
  6. LITHIUM [Suspect]
     Dosage: UNK UKN, UNK
  7. ATIVAN [Suspect]
     Dosage: UNK UKN, UNK
  8. DEPAKOTE [Suspect]
     Dosage: UNK UKN, UNK
  9. WELLBUTRIN [Suspect]
     Dosage: UNK UKN, UNK

REACTIONS (6)
  - Suicide attempt [Unknown]
  - Myocardial infarction [Unknown]
  - Atrial fibrillation [Unknown]
  - Nasopharyngitis [Unknown]
  - Panic attack [Unknown]
  - Disability [Unknown]
